FAERS Safety Report 21488301 (Version 1)
Quarter: 2022Q4

REPORT INFORMATION
  Report Type: Spontaneous
  Country: US (occurrence: US)
  Receive Date: 20221020
  Receipt Date: 20221020
  Transmission Date: 20230113
  Serious: No
  Sender: FDA-Public Use
  Company Number: US-CIPLA LTD.-2022US05144

PATIENT
  Age: 53 Year
  Sex: Male

DRUGS (1)
  1. GABAPENTIN [Suspect]
     Active Substance: GABAPENTIN
     Indication: Product used for unknown indication
     Dosage: UNK, ONLY ONE OR TWO BUT WAS NOT SURE
     Route: 065

REACTIONS (1)
  - Fatigue [Unknown]
